FAERS Safety Report 5133563-1 (Version None)
Quarter: 2006Q4

REPORT INFORMATION
  Report Type: 
  Country: None (occurrence: None)
  Receive Date: 20061018
  Receipt Date: 20061005
  Transmission Date: 20070319
  Serious: Yes (Other)
  Sender: FDA-Public Use
  Company Number: 2006123358

PATIENT
  Age: 40 Year
  Sex: Male
  Weight: 113.3993 kg

DRUGS (3)
  1. SUTENT [Suspect]
     Indication: RENAL CELL CARCINOMA STAGE UNSPECIFIED
     Dosage: 50 MG (50 MG,1 IN 1 D), ORAL
     Route: 048
     Dates: start: 20060901
  2. SINEQUAN [Concomitant]
  3. PRILOSEC [Concomitant]

REACTIONS (1)
  - NASAL SEPTUM PERFORATION [None]
